FAERS Safety Report 5796735-9 (Version None)
Quarter: 2008Q3

REPORT INFORMATION
  Report Type: 
  Country: None (occurrence: None)
  Receive Date: 20080701
  Receipt Date: 20080620
  Transmission Date: 20090109
  Serious: Yes (Hospitalization)
  Sender: FDA-Public Use
  Company Number: US-MERCK-0705USA02875

PATIENT
  Age: 52 Year
  Sex: Female

DRUGS (4)
  1. FOSAMAX [Suspect]
     Indication: OSTEOPOROSIS
     Route: 048
     Dates: start: 19990101, end: 20040101
  2. FOSAMAX [Suspect]
     Indication: OSTEOPENIA
     Route: 048
     Dates: start: 19990101, end: 20040101
  3. FOSAMAX PLUS D [Suspect]
     Indication: OSTEOPOROSIS
     Route: 048
     Dates: start: 20040101, end: 20050101
  4. LIPITOR [Suspect]
     Indication: BLOOD CHOLESTEROL INCREASED
     Route: 065
     Dates: start: 19990101, end: 20050101

REACTIONS (21)
  - ANGIOEDEMA [None]
  - ANXIETY [None]
  - BALANCE DISORDER [None]
  - BONE PAIN [None]
  - CHEST PAIN [None]
  - FIBROMA [None]
  - HEPATIC ENZYME INCREASED [None]
  - HYPERTENSION [None]
  - HYPOAESTHESIA ORAL [None]
  - INFECTION [None]
  - JAW DISORDER [None]
  - MUSCLE STRAIN [None]
  - ORAL FIBROMA [None]
  - PAIN [None]
  - PARAESTHESIA [None]
  - RESORPTION BONE INCREASED [None]
  - THROAT TIGHTNESS [None]
  - TOOTH DISORDER [None]
  - TOOTH EXTRACTION [None]
  - TRISMUS [None]
  - VERTIGO [None]
